FAERS Safety Report 5577941-5 (Version None)
Quarter: 2007Q4

REPORT INFORMATION
  Report Type: 
  Country: None (occurrence: None)
  Receive Date: 20071227
  Receipt Date: 20071219
  Transmission Date: 20080405
  Serious: Yes (Other)
  Sender: FDA-Public Use
  Company Number: 2007SP025175

PATIENT
  Sex: Male

DRUGS (2)
  1. TEMODAR [Suspect]
     Indication: DRUG USE FOR UNKNOWN INDICATION
     Dosage: PO
     Route: 048
  2. DEXAMETHASONE TAB [Suspect]
     Indication: BRAIN OEDEMA

REACTIONS (7)
  - ASTHENIA [None]
  - CONFUSIONAL STATE [None]
  - DROOLING [None]
  - INCONTINENCE [None]
  - SPEECH DISORDER [None]
  - SWELLING [None]
  - THINKING ABNORMAL [None]
